FAERS Safety Report 9233891 (Version 1)
Quarter: 2013Q2

REPORT INFORMATION
  Report Type: Spontaneous
  Country: US (occurrence: US)
  Receive Date: 20130416
  Receipt Date: 20130416
  Transmission Date: 20140414
  Serious: Yes (Other)
  Sender: FDA-Public Use
  Company Number: US-PFIZER INC-2013117777

PATIENT
  Age: 63 Year
  Sex: Male
  Weight: 88.4 kg

DRUGS (7)
  1. ACCUPRIL [Suspect]
     Dosage: 20 MG, 1X/DAY
     Dates: start: 1992
  2. LIPITOR [Concomitant]
     Dosage: UNK
  3. COREG [Concomitant]
     Dosage: UNK
  4. PLAVIX [Concomitant]
     Dosage: 75 MG, UNK
  5. ASPIRIN [Concomitant]
     Dosage: 325 MG, UNK
  6. TRICOR [Concomitant]
     Dosage: 145 MG, 1X/DAY
  7. ZETIA [Concomitant]
     Dosage: 10 MG, 1X/DAY

REACTIONS (2)
  - Myocardial infarction [Unknown]
  - Dyspnoea [Unknown]
